FAERS Safety Report 8398619-9 (Version None)
Quarter: 2012Q2

REPORT INFORMATION
  Report Type: 
  Country: None (occurrence: None)
  Receive Date: 20120531
  Receipt Date: 20120521
  Transmission Date: 20120825
  Serious: Yes (Hospitalization)
  Sender: FDA-Public Use
  Company Number: JP-ROCHE-1071380

PATIENT
  Sex: Female

DRUGS (6)
  1. METHYLPREDNISOLONE ACETATE [Concomitant]
     Dates: start: 20120509
  2. FLUTICASONE PROPIONATE [Concomitant]
     Dates: start: 20101115
  3. TRANSAMINE CAP [Concomitant]
     Dates: start: 20120509, end: 20120514
  4. THEO-DUR [Concomitant]
     Dates: start: 20101015
  5. OMALIZUMAB [Suspect]
     Indication: ASTHMA
     Dates: start: 20110511
  6. SALMETEROL XINAFOATE [Concomitant]
     Dates: start: 20101115

REACTIONS (1)
  - PERITONSILLAR ABSCESS [None]
